FAERS Safety Report 6971569-8 (Version None)
Quarter: 2010Q3

REPORT INFORMATION
  Report Type: 
  Country: None (occurrence: None)
  Receive Date: 20100908
  Receipt Date: 20100901
  Transmission Date: 20110219
  Serious: Yes (Death, Hospitalization, Other)
  Sender: FDA-Public Use
  Company Number: US-BAXTER-2010BH010313

PATIENT
  Age: 79 Year
  Sex: Male

DRUGS (1)
  1. DIANEAL [Suspect]
     Indication: PERITONEAL DIALYSIS
     Route: 033
     Dates: end: 20100401

REACTIONS (5)
  - ABDOMINAL PAIN UPPER [None]
  - INTESTINAL PERFORATION [None]
  - PERITONITIS BACTERIAL [None]
  - SEPSIS [None]
  - SEPTIC SHOCK [None]
